FAERS Safety Report 9222444 (Version 1)
Quarter: 2013Q2

REPORT INFORMATION
  Report Type: Spontaneous
  Country: US (occurrence: US)
  Receive Date: 20130410
  Receipt Date: 20130410
  Transmission Date: 20140414
  Serious: No
  Sender: FDA-Public Use
  Company Number: US-BAYER-2013-043749

PATIENT
  Sex: Male

DRUGS (2)
  1. ALEVE GELCAP [Suspect]
     Indication: BACK PAIN
     Dosage: 2 DF,EVERY 18 HOURS
     Dates: start: 2012
  2. ALEVE GELCAP [Suspect]
     Indication: BACK PAIN
     Dosage: 6 DF, UNK,PER DAY
     Dates: start: 2012

REACTIONS (3)
  - Inappropriate schedule of drug administration [None]
  - Overdose [None]
  - Incorrect drug administration duration [None]
